FAERS Safety Report 10924338 (Version 2)
Quarter: 2015Q2

REPORT INFORMATION
  Report Type: Spontaneous
  Country: US (occurrence: US)
  Receive Date: 20150318
  Receipt Date: 20150524
  Transmission Date: 20150821
  Serious: No
  Sender: FDA-Public Use
  Company Number: US-JNJFOC-20120902459

PATIENT

DRUGS (2)
  1. KETOCONAZOLE. [Suspect]
     Active Substance: KETOCONAZOLE
     Indication: PRODUCT USED FOR UNKNOWN INDICATION
     Route: 065
  2. BUTRANS [Suspect]
     Active Substance: BUPRENORPHINE
     Indication: PAIN
     Route: 062

REACTIONS (12)
  - Dyspepsia [Unknown]
  - Nausea [Unknown]
  - Somnolence [Unknown]
  - Pruritus [Unknown]
  - Application site erythema [Unknown]
  - Blood creatinine increased [Unknown]
  - Dizziness [Unknown]
  - Acne [Unknown]
  - Headache [Unknown]
  - Vomiting [Unknown]
  - Application site pruritus [Unknown]
  - Vasodilation procedure [Unknown]
